FAERS Safety Report 7538400-3 (Version None)
Quarter: 2011Q2

REPORT INFORMATION
  Report Type: 
  Country: None (occurrence: None)
  Receive Date: 20110609
  Receipt Date: 20110531
  Transmission Date: 20111010
  Serious: Yes (Other)
  Sender: FDA-Public Use
  Company Number: JP-BAXTER-2011BH018179

PATIENT
  Age: 23 Year
  Sex: Male
  Weight: 41 kg

DRUGS (6)
  1. FEIBA [Suspect]
     Indication: HAEMORRHAGE
     Route: 042
     Dates: start: 20110524, end: 20110524
  2. KETOPROFEN [Concomitant]
     Indication: HAEMOPHILIC ARTHROPATHY
     Route: 062
     Dates: start: 20100421
  3. LOXONIN [Concomitant]
     Indication: HAEMOPHILIC ARTHROPATHY
     Route: 048
     Dates: start: 20100421
  4. MUCOSTA [Concomitant]
     Indication: HAEMOPHILIC ARTHROPATHY
     Route: 048
     Dates: start: 20100421
  5. ZOLPIDEM [Concomitant]
     Indication: INSOMNIA
     Route: 048
     Dates: start: 20090901
  6. FEIBA [Suspect]
     Indication: HAEMOPHILIA
     Route: 042
     Dates: start: 20110524, end: 20110524

REACTIONS (1)
  - HEPATITIS B ANTIBODY POSITIVE [None]
